FAERS Safety Report 8780415 (Version 1)
Quarter: 2012Q4

REPORT INFORMATION
  Report Type: Spontaneous
  Country: US (occurrence: None)
  Receive Date: 20120905
  Receipt Date: 20120905
  Transmission Date: 20130627
  Serious: Yes (Other)
  Sender: FDA-Public Use
  Company Number: None

PATIENT
  Age: 55 Year
  Sex: Female
  Weight: 61.24 kg

DRUGS (1)
  1. CYMBALTA 30 MG ELI LILLY [Suspect]
     Route: 048
     Dates: start: 20080315, end: 20120831

REACTIONS (3)
  - Rash generalised [None]
  - Wound [None]
  - Wound haemorrhage [None]
